FAERS Safety Report 24018218 (Version 1)
Quarter: 2024Q2

REPORT INFORMATION
  Report Type: Spontaneous
  Country: CN (occurrence: CN)
  Receive Date: 20240627
  Receipt Date: 20240627
  Transmission Date: 20240715
  Serious: Yes (Life-Threatening, Other)
  Sender: FDA-Public Use
  Company Number: None

PATIENT
  Age: 39 Year
  Sex: Female
  Weight: 62 kg

DRUGS (6)
  1. CYCLOPHOSPHAMIDE [Suspect]
     Active Substance: CYCLOPHOSPHAMIDE
     Indication: Breast neoplasm
     Dosage: 0.45 G, ONE TIME IN ONE DAY, DILUTED WITH GLUCOSE 500ML (GS)
     Route: 041
     Dates: start: 20240514, end: 20240514
  2. DEXTROSE [Suspect]
     Active Substance: DEXTROSE\DEXTROSE MONOHYDRATE
     Indication: Medication dilution
     Dosage: 500 ML, ONE TIME IN ONE DAY, USED TO DILUTE CYCLOPHOSPHAMIDE 0.45G
     Route: 041
     Dates: start: 20240514, end: 20240514
  3. SODIUM CHLORIDE [Suspect]
     Active Substance: SODIUM CHLORIDE
     Indication: Medication dilution
     Dosage: 100 ML, ONE TIME IN ONE DAY, USED TO DILUTE PACLITAXEL FOR INJECTION(ALBUMIN BOUND) 300MG
     Route: 041
     Dates: start: 20240514, end: 20240514
  4. SODIUM CHLORIDE [Suspect]
     Active Substance: SODIUM CHLORIDE
     Dosage: 200 ML, ONE TIME IN ONE DAY, USED TO DILUTE TORIPALIMAB 240MG
     Route: 041
     Dates: start: 20240514, end: 20240514
  5. PACLITAXEL [Suspect]
     Active Substance: PACLITAXEL
     Indication: Breast neoplasm
     Dosage: 300 MG, ONE TIME IN ONE DAY, DILUTED WITH SODIUM CHLORIDE 100 ML (NS)
     Route: 041
     Dates: start: 20240514, end: 20240514
  6. TORIPALIMAB [Suspect]
     Active Substance: TORIPALIMAB
     Indication: Breast neoplasm
     Dosage: 240 MG, ONE TIME IN ONE DAY, DILUTED WITH SODIUM CHLORIDE 200 ML (NS)
     Route: 041
     Dates: start: 20240514, end: 20240514

REACTIONS (2)
  - Breast cancer [Unknown]
  - Myelosuppression [Recovering/Resolving]

NARRATIVE: CASE EVENT DATE: 20240517
